FAERS Safety Report 5870709-1 (Version None)
Quarter: 2008Q3

REPORT INFORMATION
  Report Type: 
  Country: None (occurrence: None)
  Receive Date: 20080904
  Receipt Date: 20080904
  Transmission Date: 20090109
  Serious: Yes (Hospitalization)
  Sender: FDA-Public Use
  Company Number: PHEH1996US07565

PATIENT
  Sex: Female
  Weight: 88 kg

DRUGS (8)
  1. NEORAL [Suspect]
     Route: 048
     Dates: start: 19950406
  2. AZATHIOPRINE [Suspect]
     Dosage: UNSPECIFIED
     Route: 065
  3. PREDNISONE [Suspect]
     Dosage: UNSPECIFIED
     Route: 065
  4. ACYCLOVIR [Concomitant]
  5. NIFEDIPINE [Concomitant]
  6. CIPROFLOXACIN [Concomitant]
  7. AMPICILLIN/SULBACTAM (UNACID) [Concomitant]
  8. AMPHOTERICIN B [Concomitant]

REACTIONS (1)
  - URINARY TRACT INFECTION [None]
